FAERS Safety Report 12621656 (Version 1)
Quarter: 2016Q3

REPORT INFORMATION
  Report Type: Spontaneous
  Country: CA (occurrence: None)
  Receive Date: 20160803
  Receipt Date: 20160803
  Transmission Date: 20161109
  Serious: Yes (Death)
  Sender: FDA-Public Use
  Company Number: None

PATIENT
  Age: 4 Year
  Sex: Male
  Weight: 18.6 kg

DRUGS (6)
  1. VINCRISTINE SULFATE. [Suspect]
     Active Substance: VINCRISTINE SULFATE
     Dates: end: 20160726
  2. ONCASPAR [Suspect]
     Active Substance: PEGASPARGASE
     Dates: end: 20160722
  3. CYTARABINE. [Suspect]
     Active Substance: CYTARABINE
     Dates: end: 20160718
  4. METHOTREXATE. [Suspect]
     Active Substance: METHOTREXATE
     Dates: end: 20160726
  5. DAUNORUBICIN [Suspect]
     Active Substance: DAUNORUBICIN
     Dates: end: 20160726
  6. DEXAMETHASONE. [Suspect]
     Active Substance: DEXAMETHASONE
     Dates: end: 20160728

REACTIONS (7)
  - Hemiparesis [None]
  - Skin lesion [None]
  - Cardio-respiratory arrest [None]
  - Inappropriate antidiuretic hormone secretion [None]
  - Pain in extremity [None]
  - Staphylococcus test positive [None]
  - Complication associated with device [None]

NARRATIVE: CASE EVENT DATE: 20160728
